FAERS Safety Report 8459927-6 (Version None)
Quarter: 2012Q2

REPORT INFORMATION
  Report Type: 
  Country: None (occurrence: None)
  Receive Date: 20120622
  Receipt Date: 20120619
  Transmission Date: 20120825
  Serious: Yes (Other)
  Sender: FDA-Public Use
  Company Number: PHEH2011US012220

PATIENT
  Sex: Female
  Weight: 53.93 kg

DRUGS (4)
  1. GILENYA [Suspect]
     Indication: MULTIPLE SCLEROSIS
     Dosage: 0.5 MG, QD
     Route: 048
     Dates: start: 20111214, end: 20111214
  2. VITAMIN D [Concomitant]
     Dosage: 50000 U, WEEKLY
     Route: 048
  3. DETROL [Concomitant]
     Dosage: 1 DF, DAILY
     Route: 048
  4. DIAMOX [Concomitant]
     Dosage: 250 MG, FOR ONE WEEK, THEN INCREASE DOSAGE
     Route: 048

REACTIONS (12)
  - FALL [None]
  - MULTIPLE SCLEROSIS RELAPSE [None]
  - FRACTURE [None]
  - GAIT DISTURBANCE [None]
  - PARAESTHESIA [None]
  - ATRIAL FIBRILLATION [None]
  - MITRAL VALVE INCOMPETENCE [None]
  - BALANCE DISORDER [None]
  - PRURITUS [None]
  - BLOOD PRESSURE INCREASED [None]
  - JC VIRUS TEST POSITIVE [None]
  - TRICUSPID VALVE INCOMPETENCE [None]
